FAERS Safety Report 8783776 (Version 1)
Quarter: 2012Q4

REPORT INFORMATION
  Report Type: Spontaneous
  Country: US (occurrence: None)
  Receive Date: 20120829
  Receipt Date: 20120829
  Transmission Date: 20130627
  Serious: Yes (Other)
  Sender: FDA-Public Use
  Company Number: 1208-448

PATIENT
  Age: 87 Year
  Sex: Female
  Weight: 72.58 kg

DRUGS (2)
  1. EYLEA [Suspect]
     Dates: start: 201203
  2. SYNTHROID (LEVOTHYROXINE) [Concomitant]
     Indication: MACULAR DEGENERATION

REACTIONS (3)
  - Vision blurred [None]
  - Blindness [None]
  - Eye disorder [None]
